FAERS Safety Report 6415773-6 (Version None)
Quarter: 2009Q4

REPORT INFORMATION
  Report Type: 
  Country: None (occurrence: None)
  Receive Date: 20091022
  Receipt Date: 20091008
  Transmission Date: 20100525
  Serious: Yes (Hospitalization)
  Sender: FDA-Public Use
  Company Number: 2009EU003835

PATIENT
  Age: 11 Year
  Sex: Male
  Weight: 36.7 kg

DRUGS (1)
  1. TACROLIMUS [Suspect]
     Indication: DERMATITIS ATOPIC
     Dosage: /D, TOPICAL
     Route: 061
     Dates: start: 20040101

REACTIONS (1)
  - MENINGITIS [None]
